FAERS Safety Report 7925950-0 (Version None)
Quarter: 2011Q4

REPORT INFORMATION
  Report Type: 
  Country: None (occurrence: None)
  Receive Date: 20111118
  Receipt Date: 20110415
  Transmission Date: 20120403
  Serious: No
  Sender: FDA-Public Use
  Company Number: US-AMGEN-USASP2011020067

PATIENT
  Age: 49 Year
  Sex: Female
  Weight: 117.1 kg

DRUGS (2)
  1. COUMADIN [Concomitant]
     Dosage: 1 MG, UNK
  2. ENBREL [Suspect]
     Indication: PRODUCT USED FOR UNKNOWN INDICATION
     Dosage: 50 MG, QWK
     Route: 058

REACTIONS (2)
  - INJECTION SITE ERYTHEMA [None]
  - INJECTION SITE REACTION [None]
